FAERS Safety Report 7094088-X (Version None)
Quarter: 2010Q4

REPORT INFORMATION
  Report Type: 
  Country: None (occurrence: None)
  Receive Date: 20101109
  Receipt Date: 20101109
  Transmission Date: 20110411
  Serious: Yes (Hospitalization)
  Sender: FDA-Public Use
  Company Number: None

PATIENT
  Age: 28 Year
  Sex: Female
  Weight: 54.4316 kg

DRUGS (1)
  1. BOTOX [Suspect]
     Dosage: 25 UNITS

REACTIONS (7)
  - DIZZINESS [None]
  - HEADACHE [None]
  - MALAISE [None]
  - PALPITATIONS [None]
  - TENSION [None]
  - THROAT TIGHTNESS [None]
  - VISION BLURRED [None]
